FAERS Safety Report 16956383 (Version 1)
Quarter: 2019Q4

REPORT INFORMATION
  Report Type: Spontaneous
  Country: US (occurrence: US)
  Receive Date: 20191023
  Receipt Date: 20191023
  Transmission Date: 20200122
  Serious: No
  Sender: FDA-Public Use
  Company Number: None

PATIENT
  Sex: Female

DRUGS (1)
  1. SANVALL 10% CAMPHOR PAIN RELIEVING OINTMENT [Suspect]
     Active Substance: CAMPHOR

REACTIONS (2)
  - Product formulation issue [None]
  - Product use complaint [None]

NARRATIVE: CASE EVENT DATE: 20190923
